FAERS Safety Report 10236131 (Version 3)
Quarter: 2015Q2

REPORT INFORMATION
  Report Type: Spontaneous
  Country: US (occurrence: US)
  Receive Date: 20140613
  Receipt Date: 20150626
  Transmission Date: 20150821
  Serious: Yes (Other)
  Sender: FDA-Public Use
  Company Number: US-UCBSA-121715

PATIENT
  Age: 50 Year
  Sex: Male
  Weight: 68.93 kg

DRUGS (4)
  1. CANASA [Concomitant]
     Active Substance: MESALAMINE
     Indication: ANORECTAL DISORDER
     Dosage: UNK
     Route: 054
  2. CIMZIA [Suspect]
     Active Substance: CERTOLIZUMAB PEGOL
     Indication: CROHN^S DISEASE
     Dosage: 400 MG, EV 2 WEEKS(QOW), STRENGTH: 200MG/ML, 2 INJECTIONS TOTAL OF 400 MG EACH TIME
     Route: 058
     Dates: start: 201404, end: 2014
  3. LIALDA [Concomitant]
     Active Substance: MESALAMINE
     Indication: CROHN^S DISEASE
     Dosage: UNK
     Route: 048
  4. BUDESONIDE. [Concomitant]
     Active Substance: BUDESONIDE
     Dosage: 9 MG, ONCE DAILY (QD)
     Route: 048
     Dates: start: 201311

REACTIONS (2)
  - Headache [Recovered/Resolved]
  - Oropharyngeal pain [Recovered/Resolved]

NARRATIVE: CASE EVENT DATE: 201404
